FAERS Safety Report 7116141-4 (Version None)
Quarter: 2010Q4

REPORT INFORMATION
  Report Type: 
  Country: None (occurrence: None)
  Receive Date: 20101122
  Receipt Date: 20101109
  Transmission Date: 20110411
  Serious: Yes (Hospitalization)
  Sender: FDA-Public Use
  Company Number: PHHY2010JP78479

PATIENT
  Age: 80 Year
  Sex: Female

DRUGS (15)
  1. VOLTAREN [Suspect]
     Indication: PAIN
     Dosage: PRN
     Route: 054
  2. VOLTAREN [Suspect]
     Indication: PAIN
     Dosage: PRN
     Route: 061
  3. SEDIEL [Concomitant]
     Dosage: UNK
  4. RIZE [Concomitant]
     Dosage: UNK
  5. AMOBAN [Concomitant]
     Dosage: UNK
  6. LAXOBERON [Concomitant]
     Dosage: UNK
  7. ONEALFA [Concomitant]
     Dosage: UNK
  8. FOIPAN [Concomitant]
     Dosage: UNK
  9. GASMOTIN [Concomitant]
     Dosage: UNK
  10. GASCON [Concomitant]
     Dosage: UNK
  11. TAKEPRON [Concomitant]
     Dosage: UNK
  12. VITAMEDIN [Concomitant]
     Dosage: UNK
  13. GASTROM [Concomitant]
     Dosage: UNK
  14. MAGMITT [Concomitant]
     Dosage: UNK
  15. LOXONIN [Concomitant]
     Dosage: UNK

REACTIONS (1)
  - DIZZINESS [None]
